FAERS Safety Report 5625030-3 (Version None)
Quarter: 2008Q1

REPORT INFORMATION
  Report Type: 
  Country: None (occurrence: None)
  Receive Date: 20080208
  Receipt Date: 20080206
  Transmission Date: 20080703
  Serious: Yes (Death)
  Sender: FDA-Public Use
  Company Number: SPV1-2008-00064

PATIENT
  Sex: 0

DRUGS (1)
  1. FOSRENOL [Suspect]

REACTIONS (1)
  - CARDIAC ARREST [None]
